FAERS Safety Report 21011977 (Version 1)
Quarter: 2022Q2

REPORT INFORMATION
  Report Type: Spontaneous
  Country: US (occurrence: US)
  Receive Date: 20220627
  Receipt Date: 20220627
  Transmission Date: 20220721
  Serious: No
  Sender: FDA-Public Use
  Company Number: US-BAYER-2022A087904

PATIENT
  Sex: Female

DRUGS (1)
  1. CLARITIN [Suspect]
     Active Substance: LORATADINE

REACTIONS (6)
  - Mood altered [Unknown]
  - Allergic reaction to excipient [Unknown]
  - Palpitations [Unknown]
  - Swollen tongue [Unknown]
  - Tongue blistering [Unknown]
  - Tongue ulceration [Unknown]
